FAERS Safety Report 24055565 (Version 1)
Quarter: 2024Q3

REPORT INFORMATION
  Report Type: Spontaneous
  Country: US (occurrence: US)
  Receive Date: 20240705
  Receipt Date: 20240705
  Transmission Date: 20241016
  Serious: Yes (Other)
  Sender: ELI LILLY AND CO
  Company Number: US-ELI_LILLY_AND_COMPANY-US202407000416

PATIENT
  Age: 77 Year
  Sex: Female

DRUGS (1)
  1. HUMALOG MIX75/25 [Suspect]
     Active Substance: INSULIN LISPRO
     Indication: Type 2 diabetes mellitus
     Dosage: 44 INTERNATIONAL UNIT, BID
     Route: 065

REACTIONS (3)
  - Carcinoid tumour [Unknown]
  - Fibromyalgia [Unknown]
  - Wrong product administered [Unknown]

NARRATIVE: CASE EVENT DATE: 20070101
